FAERS Safety Report 20563448 (Version 1)
Quarter: 2022Q1

REPORT INFORMATION
  Report Type: Spontaneous
  Country: CA (occurrence: CA)
  Receive Date: 20220308
  Receipt Date: 20220308
  Transmission Date: 20220423
  Serious: Yes (Other)
  Sender: FDA-Public Use
  Company Number: CA-TEVA-2022-CA-2012735

PATIENT
  Sex: Female
  Weight: 3 kg

DRUGS (9)
  1. ATAZANAVIR [Suspect]
     Active Substance: ATAZANAVIR
     Indication: Antiretroviral therapy
     Route: 064
  2. CEFAZOLIN [Suspect]
     Active Substance: CEFAZOLIN
     Indication: Product used for unknown indication
     Route: 064
  3. ABACAVIR SULFATE [Suspect]
     Active Substance: ABACAVIR SULFATE
     Indication: Antiretroviral therapy
     Route: 064
  4. LAMIVUDINE [Suspect]
     Active Substance: LAMIVUDINE
     Indication: Antiretroviral therapy
     Route: 064
  5. RITONAVIR [Suspect]
     Active Substance: RITONAVIR
     Indication: Antiretroviral therapy
     Route: 064
  6. ROCURONIUM [Suspect]
     Active Substance: ROCURONIUM BROMIDE
     Indication: Product used for unknown indication
     Route: 015
  7. ROCURONIUM [Suspect]
     Active Substance: ROCURONIUM BROMIDE
     Route: 015
  8. ZIDOVUDINE [Suspect]
     Active Substance: ZIDOVUDINE
     Indication: Product used for unknown indication
     Route: 064
  9. ZIDOVUDINE [Suspect]
     Active Substance: ZIDOVUDINE
     Indication: Antiretroviral therapy
     Route: 064

REACTIONS (4)
  - Foetal anaemia [Unknown]
  - Isoimmune haemolytic disease [Unknown]
  - Premature baby [Unknown]
  - Foetal exposure during pregnancy [Unknown]
